FAERS Safety Report 15333852 (Version 1)
Quarter: 2018Q3

REPORT INFORMATION
  Report Type: Spontaneous
  Country: FI (occurrence: FI)
  Receive Date: 20180830
  Receipt Date: 20180830
  Transmission Date: 20181010
  Serious: Yes (Death, Life-Threatening, Hospitalization, Other)
  Sender: FDA-Public Use
  Company Number: FI-GLAXOSMITHKLINE-FI2018136601

PATIENT
  Age: 48 Year
  Sex: Male

DRUGS (4)
  1. METOPROLOL. [Suspect]
     Active Substance: METOPROLOL
     Indication: SUICIDE ATTEMPT
     Dosage: UNK
     Route: 048
  2. AMLODIPINE [Suspect]
     Active Substance: AMLODIPINE BESYLATE
     Indication: SUICIDE ATTEMPT
     Dosage: UNK
     Route: 048
  3. PROPRANOLOL HYDROCHLORIDE. [Suspect]
     Active Substance: PROPRANOLOL HYDROCHLORIDE
     Indication: SUICIDE ATTEMPT
     Dosage: UNK
     Route: 048
  4. NICOTINE. [Suspect]
     Active Substance: NICOTINE
     Indication: SUICIDE ATTEMPT
     Dosage: UNK
     Route: 065

REACTIONS (2)
  - Shock [Recovered/Resolved]
  - Toxicity to various agents [Fatal]
